FAERS Safety Report 5592490-6 (Version None)
Quarter: 2008Q1

REPORT INFORMATION
  Report Type: 
  Country: None (occurrence: None)
  Receive Date: 20080111
  Receipt Date: 20080104
  Transmission Date: 20080703
  Serious: Yes (Hospitalization, Other)
  Sender: FDA-Public Use
  Company Number: 2007SP021364

PATIENT
  Age: 54 Year
  Sex: Female
  Weight: 76.2043 kg

DRUGS (11)
  1. PEG-INTRON [Suspect]
     Indication: HEPATITIS B
     Dosage: SC, SC
     Route: 058
     Dates: start: 20040101
  2. PEG-INTRON [Suspect]
     Indication: HEPATITIS C
     Dosage: SC, SC
     Route: 058
     Dates: start: 20040101
  3. PEG-INTRON [Suspect]
     Indication: HEPATITIS B
     Dosage: SC, SC
     Route: 058
     Dates: start: 20071025
  4. PEG-INTRON [Suspect]
     Indication: HEPATITIS C
     Dosage: SC, SC
     Route: 058
     Dates: start: 20071025
  5. REBETOL [Suspect]
     Indication: HEPATITIS B
     Dates: start: 20071025
  6. REBETOL [Suspect]
     Indication: HEPATITIS C
     Dates: start: 20071025
  7. FIORINAL [Concomitant]
  8. PRILOSEC [Concomitant]
  9. CARAFATE [Concomitant]
  10. LEXAPRO [Concomitant]
  11. ADVAIR DISKUS 100/50 [Concomitant]

REACTIONS (21)
  - APHONIA [None]
  - BREAST CANCER FEMALE [None]
  - BRONCHITIS [None]
  - DIVORCED [None]
  - DYSPHAGIA [None]
  - EPISTAXIS [None]
  - FATIGUE [None]
  - HAND FRACTURE [None]
  - HYPOAESTHESIA [None]
  - LIP PAIN [None]
  - LIP SWELLING [None]
  - MUSCLE SPASMS [None]
  - MUSCULOSKELETAL CHEST PAIN [None]
  - PNEUMONIA [None]
  - PYREXIA [None]
  - ROAD TRAFFIC ACCIDENT [None]
  - SINUS DISORDER [None]
  - SLEEP DISORDER [None]
  - STRESS [None]
  - VOCAL CORD DISORDER [None]
  - WEIGHT DECREASED [None]
